FAERS Safety Report 5612076-4 (Version None)
Quarter: 2008Q1

REPORT INFORMATION
  Report Type: 
  Country: None (occurrence: None)
  Receive Date: 20080204
  Receipt Date: 20080125
  Transmission Date: 20080703
  Serious: Yes (Hospitalization)
  Sender: FDA-Public Use
  Company Number: PHBS2008BR01458

PATIENT
  Age: 46 Year
  Sex: Female

DRUGS (1)
  1. CLOZAPINE [Suspect]
     Indication: SCHIZOPHRENIA, PARANOID TYPE
     Route: 065

REACTIONS (11)
  - ASTHENIA [None]
  - BIOPSY SPLEEN ABNORMAL [None]
  - DELUSION [None]
  - LEUKOPENIA [None]
  - LYMPHOMA [None]
  - NEUTROPENIA [None]
  - PSYCHOTIC DISORDER [None]
  - PYREXIA [None]
  - SEPSIS [None]
  - SPLENOMEGALY [None]
  - SUICIDAL IDEATION [None]
